FAERS Safety Report 7717510-1 (Version None)
Quarter: 2011Q3

REPORT INFORMATION
  Report Type: 
  Country: None (occurrence: None)
  Receive Date: 20110830
  Receipt Date: 20110818
  Transmission Date: 20111222
  Serious: Yes (Other)
  Sender: FDA-Public Use
  Company Number: CA-ELI_LILLY_AND_COMPANY-CA201108004509

PATIENT
  Age: 66 Year
  Sex: Female

DRUGS (7)
  1. FORTEO [Suspect]
     Indication: OSTEOPOROSIS
     Dosage: 20 UG, QD
     Route: 058
     Dates: start: 20100225
  2. VITAMIN D [Concomitant]
  3. CALCIUM CARBONATE [Concomitant]
  4. THYROXIN [Concomitant]
  5. DIAMOX SRC [Concomitant]
  6. COENZYME Q10 [Concomitant]
  7. TRAZODONE HYDROCHLORIDE [Concomitant]

REACTIONS (10)
  - NEPHROLITHIASIS [None]
  - FLANK PAIN [None]
  - DYSPNOEA [None]
  - LUNG NEOPLASM [None]
  - CHEST PAIN [None]
  - RENAL CYST [None]
  - COUGH [None]
  - HEPATOMEGALY [None]
  - HAEMOGLOBIN DECREASED [None]
  - NAUSEA [None]
